FAERS Safety Report 23059224 (Version 3)
Quarter: 2025Q1

REPORT INFORMATION
  Report Type: Spontaneous
  Country: US (occurrence: US)
  Receive Date: 20231012
  Receipt Date: 20250117
  Transmission Date: 20250409
  Serious: Yes (Other)
  Sender: PFIZER
  Company Number: US-PFIZER INC-202300304862

PATIENT
  Age: 73 Year
  Sex: Male

DRUGS (4)
  1. CIBINQO [Suspect]
     Active Substance: ABROCITINIB
     Indication: Rash erythematous
     Dosage: TAKE 1 TABLET ONCE A DAY
     Route: 048
  2. CIBINQO [Suspect]
     Active Substance: ABROCITINIB
     Indication: Dermatitis atopic
  3. CIBINQO [Suspect]
     Active Substance: ABROCITINIB
     Indication: Post inflammatory pigmentation change
  4. CIBINQO [Suspect]
     Active Substance: ABROCITINIB
     Indication: Xerosis

REACTIONS (3)
  - Rotator cuff repair [Recovered/Resolved]
  - Wound [Unknown]
  - Skin ulcer [Unknown]

NARRATIVE: CASE EVENT DATE: 20241118
